FAERS Safety Report 13197911 (Version 1)
Quarter: 2017Q1

REPORT INFORMATION
  Report Type: Spontaneous
  Country: US (occurrence: US)
  Receive Date: 20170207
  Receipt Date: 20170207
  Transmission Date: 20170428
  Serious: No
  Sender: FDA-Public Use
  Company Number: None

PATIENT
  Sex: Male

DRUGS (1)
  1. HUMIRA [Suspect]
     Active Substance: ADALIMUMAB
     Dosage: 6 WEEKS AGO TO CURRENT
     Route: 058

REACTIONS (6)
  - Joint swelling [None]
  - Pruritus [None]
  - Rash erythematous [None]
  - Dyspnoea [None]
  - Rash [None]
  - Chills [None]
